FAERS Safety Report 8914001 (Version 2)
Quarter: 2013Q2

REPORT INFORMATION
  Report Type: Spontaneous
  Country: JP (occurrence: JP)
  Receive Date: 20121119
  Receipt Date: 20130504
  Transmission Date: 20140414
  Serious: Yes (Other)
  Sender: FDA-Public Use
  Company Number: JP-009507513-1211JPN006053

PATIENT
  Age: 52 Year
  Sex: Female

DRUGS (4)
  1. GASTER D [Suspect]
     Dosage: 20 MG, QD
     Route: 048
     Dates: start: 20121016, end: 20121030
  2. CELECOX [Suspect]
     Indication: BACK PAIN
     Dosage: 200 MG, QD
     Route: 048
     Dates: start: 20121016, end: 20121030
  3. NEUROTROPIN [Suspect]
     Dosage: 16 IU, QD
     Route: 048
     Dates: start: 20121019, end: 20121030
  4. [THERAPY UNSPECIFIED] [Suspect]
     Indication: BREAST CANCER

REACTIONS (1)
  - Papule [Unknown]
